FAERS Safety Report 11720722 (Version 3)
Quarter: 2020Q4

REPORT INFORMATION
  Report Type: Spontaneous
  Country: BE (occurrence: BE)
  Receive Date: 20151110
  Receipt Date: 20201117
  Transmission Date: 20210113
  Serious: Yes (Death, Life-Threatening, Other)
  Sender: FDA-Public Use
  Company Number: BE-SA-2015SA179256

PATIENT

DRUGS (11)
  1. THYMOGLOBULIN [Suspect]
     Active Substance: LAPINE T-LYMPHOCYTE IMMUNE GLOBULIN
     Indication: KIDNEY TRANSPLANT REJECTION
     Dosage: UNK UNK,UNK
     Route: 065
  2. RANITIDINE. [Concomitant]
     Active Substance: RANITIDINE
     Dosage: 150 MG,QD
     Route: 065
  3. MYCOPHENOLATE MOFETIL. [Suspect]
     Active Substance: MYCOPHENOLATE MOFETIL
     Dosage: UNK UNK,UNK
     Route: 065
  4. DOXORUBICIN [Suspect]
     Active Substance: DOXORUBICIN
     Indication: T-CELL LYMPHOMA
     Dosage: UNK UNK,UNK
     Route: 065
  5. RITUXIMAB. [Suspect]
     Active Substance: RITUXIMAB
     Indication: T-CELL LYMPHOMA STAGE IV
     Dosage: UNK UNK,UNK
     Route: 065
  6. SULFAMETHOXAZOLE [Concomitant]
     Active Substance: SULFAMETHOXAZOLE
     Dosage: 800 MG,UNK
     Route: 065
  7. METHYLPREDNISOLONE. [Suspect]
     Active Substance: METHYLPREDNISOLONE
     Indication: IMMUNOSUPPRESSANT DRUG THERAPY
     Dosage: 4 MG,QD
     Route: 065
  8. MYCOPHENOLATE MOFETIL. [Suspect]
     Active Substance: MYCOPHENOLATE MOFETIL
     Indication: IMMUNOSUPPRESSION
     Dosage: 500 MG,BID
     Route: 065
  9. CYCLOPHOSPHAMIDE. [Suspect]
     Active Substance: CYCLOPHOSPHAMIDE
     Indication: T-CELL LYMPHOMA STAGE IV
     Dosage: UNK UNK,UNK
     Route: 065
  10. TACROLIMUS. [Suspect]
     Active Substance: TACROLIMUS
     Indication: IMMUNOSUPPRESSION
     Dosage: 14 MG,QD
     Route: 065
  11. ACETYLSALICYLIC ACID [Concomitant]
     Active Substance: ASPIRIN
     Dosage: 100 MG,QD
     Route: 065

REACTIONS (26)
  - Post transplant lymphoproliferative disorder [Fatal]
  - Clostridium difficile infection [Unknown]
  - Abdominal pain [Fatal]
  - C-reactive protein increased [Fatal]
  - Blood lactate dehydrogenase increased [Fatal]
  - Fungal infection [Unknown]
  - Hypoalbuminaemia [Fatal]
  - Chills [Unknown]
  - Bronchopulmonary aspergillosis [Unknown]
  - Oropharyngeal pain [Fatal]
  - Renal impairment [Unknown]
  - Systemic candida [Unknown]
  - Dysphagia [Fatal]
  - Arthralgia [Fatal]
  - Gamma-glutamyltransferase increased [Fatal]
  - Blood alkaline phosphatase increased [Fatal]
  - Neutropenia [Fatal]
  - Sepsis [Fatal]
  - Cholestasis [Fatal]
  - Pyrexia [Fatal]
  - Diarrhoea [Unknown]
  - Abdominal pain [Unknown]
  - Peritonitis [Unknown]
  - Tumour necrosis [Fatal]
  - Intestinal perforation [Unknown]
  - Pyrexia [Unknown]
